FAERS Safety Report 8322050-5 (Version None)
Quarter: 2012Q2

REPORT INFORMATION
  Report Type: 
  Country: None (occurrence: None)
  Receive Date: 20120426
  Receipt Date: 20120411
  Transmission Date: 20120825
  Serious: Yes (Hospitalization)
  Sender: FDA-Public Use
  Company Number: 2012MA004949

PATIENT
  Age: 75 Year
  Sex: Female

DRUGS (14)
  1. FERROUS SULFATE TAB [Concomitant]
  2. EXEMESTANE [Concomitant]
  3. ORAMORPH SR [Concomitant]
  4. LAXIDO [Concomitant]
  5. DOMPERIDONE [Concomitant]
  6. MS CONTIN [Concomitant]
  7. LACTULOSE [Concomitant]
  8. NAPROXEN [Suspect]
     Dosage: 250 MG; BID; PO
     Route: 048
     Dates: end: 20120307
  9. ADCAL-D3 [Concomitant]
  10. GAVISCON [Concomitant]
  11. TRIMETHOPRIM [Concomitant]
  12. ACETAMINOPHEN AND CODEINE PHOSPHATE [Concomitant]
  13. DEXAMETHASONE [Concomitant]
  14. OMEPRAZOLE [Concomitant]

REACTIONS (2)
  - HAEMOGLOBIN DECREASED [None]
  - GASTROINTESTINAL HAEMORRHAGE [None]
